FAERS Safety Report 4508640-6 (Version None)
Quarter: 2004Q4

REPORT INFORMATION
  Report Type: 
  Country: None (occurrence: None)
  Receive Date: 20041123
  Receipt Date: 20020924
  Transmission Date: 20050328
  Serious: No
  Sender: FDA-Public Use
  Company Number: US-GLAXOSMITHKLINE-A0381524A

PATIENT
  Age: 41 Year
  Sex: Female

DRUGS (3)
  1. WELLBUTRIN SR [Suspect]
     Indication: DEPRESSION
     Dosage: 150MG PER DAY
     Route: 048
     Dates: start: 20010101
  2. ORAL CONTRACEPTIVE [Concomitant]
     Route: 048
  3. ASTHMA MEDICATION [Concomitant]
     Indication: ASTHMA
     Route: 065

REACTIONS (1)
  - ALOPECIA [None]
